FAERS Safety Report 13000380 (Version 2)
Quarter: 2016Q4

REPORT INFORMATION
  Report Type: Spontaneous
  Country: US (occurrence: US)
  Receive Date: 20161206
  Receipt Date: 20161206
  Transmission Date: 20170207
  Serious: Yes (Hospitalization)
  Sender: FDA-Public Use
  Company Number: US-ASTRAZENECA-2016SF27108

PATIENT
  Age: 40 Year
  Sex: Female
  Weight: 95.3 kg

DRUGS (14)
  1. PORTABLE OXYGEN [Concomitant]
     Dosage: AS REQUIRED
     Route: 055
  2. BREO ELLIPTA [Concomitant]
     Active Substance: FLUTICASONE FUROATE\VILANTEROL TRIFENATATE
     Indication: ASTHMA
     Dosage: 200 25 MCG, DAILY
     Route: 055
     Dates: start: 2015
  3. PRAVASTATIN. [Concomitant]
     Active Substance: PRAVASTATIN
     Indication: BLOOD CHOLESTEROL ABNORMAL
     Route: 048
  4. PROVENTIL [Concomitant]
     Active Substance: ALBUTEROL
  5. BREO ELLIPTA [Concomitant]
     Active Substance: FLUTICASONE FUROATE\VILANTEROL TRIFENATATE
     Indication: CHRONIC OBSTRUCTIVE PULMONARY DISEASE
     Dosage: 200 25 MCG, DAILY
     Route: 055
     Dates: start: 2015
  6. SYMBICORT [Suspect]
     Active Substance: BUDESONIDE\FORMOTEROL FUMARATE DIHYDRATE
     Indication: CHRONIC OBSTRUCTIVE PULMONARY DISEASE
     Dosage: 160 / 4.5 MG 2 PUFFS ONCE OR TWICE DAILY
     Route: 055
     Dates: start: 2007
  7. FENTENYL [Concomitant]
     Indication: PAIN
     Route: 061
     Dates: start: 201501
  8. MORPHINE [Concomitant]
     Active Substance: MORPHINE
     Indication: PAIN
  9. ALBUTEROL. [Concomitant]
     Active Substance: ALBUTEROL
  10. SEROQUEL XR [Suspect]
     Active Substance: QUETIAPINE FUMARATE
     Indication: SLEEP DISORDER
     Route: 048
     Dates: start: 2009, end: 20161125
  11. VICODIN [Concomitant]
     Active Substance: ACETAMINOPHEN\HYDROCODONE BITARTRATE
     Indication: PAIN
  12. OXYCODONE [Concomitant]
     Active Substance: OXYCODONE
     Indication: PAIN
     Dosage: 10 375 MG, SIX TIMES A DAY
     Route: 048
     Dates: start: 201501
  13. IPIRATROPIUM BROMIDE [Concomitant]
     Dosage: 2 PERCENT 5 MG ML, AS REQUIRED
     Route: 055
     Dates: start: 2014
  14. QVAR [Concomitant]
     Active Substance: BECLOMETHASONE DIPROPIONATE
     Indication: INHALATION THERAPY
     Dosage: 80.0UG AS REQUIRED
     Route: 055

REACTIONS (19)
  - Gluten sensitivity [Unknown]
  - Lower limb fracture [Unknown]
  - Pneumonia [Unknown]
  - Hypertension [Unknown]
  - Bronchitis [Unknown]
  - Insomnia [Unknown]
  - Eye irritation [Unknown]
  - Burning sensation [Unknown]
  - Erythema [Unknown]
  - Off label use [Unknown]
  - Diabetes mellitus [Unknown]
  - Gallbladder disorder [Unknown]
  - Bursitis [Unknown]
  - Osteoarthritis [Unknown]
  - Peripheral swelling [Unknown]
  - Gait disturbance [Unknown]
  - Arthritis [Unknown]
  - Weight decreased [Unknown]
  - Complex regional pain syndrome [Unknown]

NARRATIVE: CASE EVENT DATE: 2009
